FAERS Safety Report 21218202 (Version 1)
Quarter: 2022Q3

REPORT INFORMATION
  Report Type: Spontaneous
  Country: BR (occurrence: BR)
  Receive Date: 20220816
  Receipt Date: 20220816
  Transmission Date: 20221027
  Serious: Yes (Death, Other)
  Sender: FDA-Public Use
  Company Number: BR-PFIZER INC-2020278848

PATIENT
  Age: 63 Year
  Sex: Male

DRUGS (1)
  1. SUTENT [Suspect]
     Active Substance: SUNITINIB MALATE
     Indication: Clear cell renal cell carcinoma
     Dosage: 50 MG, 2 WEEKS AND REST FOR 1 WEEK, CONTINUOUSLY
     Dates: start: 20200730

REACTIONS (1)
  - Death [Fatal]

NARRATIVE: CASE EVENT DATE: 20220803
